FAERS Safety Report 9823635 (Version 1)
Quarter: 2014Q1

REPORT INFORMATION
  Report Type: Spontaneous
  Country: JP (occurrence: JP)
  Receive Date: 20140116
  Receipt Date: 20140116
  Transmission Date: 20141002
  Serious: Yes (Other)
  Sender: FDA-Public Use
  Company Number: PHHY2013JP123514

PATIENT
  Age: 29 Year
  Sex: Male

DRUGS (6)
  1. EVEROLIMUS [Suspect]
     Indication: RENAL TRANSPLANT
     Dosage: 2 MG
     Route: 048
     Dates: start: 20130307
  2. EVEROLIMUS [Interacting]
     Route: 048
  3. TACROLIMUS [Interacting]
     Indication: RENAL TRANSPLANT
     Dosage: 4 MG
     Route: 048
     Dates: start: 20130218
  4. MIZORIBINE [Suspect]
     Indication: RENAL TRANSPLANT
     Dosage: 350 MG
     Route: 048
     Dates: start: 20130220
  5. PREDONINE [Concomitant]
     Indication: RENAL TRANSPLANT
  6. SIMULECT [Concomitant]
     Indication: RENAL TRANSPLANT
     Dosage: 20 MG
     Route: 042

REACTIONS (5)
  - Pseudomembranous colitis [Recovered/Resolved]
  - Diarrhoea [Unknown]
  - Immunosuppressant drug level increased [Unknown]
  - Immunosuppressant drug level decreased [Unknown]
  - Drug interaction [Recovered/Resolved]
